FAERS Safety Report 5413913-9 (Version None)
Quarter: 2007Q3

REPORT INFORMATION
  Report Type: 
  Country: None (occurrence: None)
  Receive Date: 20070810
  Receipt Date: 20070726
  Transmission Date: 20080115
  Serious: Yes (Other)
  Sender: FDA-Public Use
  Company Number: 200#03#2007-02916

PATIENT
  Age: 4 Month
  Sex: Female

DRUGS (1)
  1. VOLTAREN [Suspect]
     Indication: PYREXIA
     Dosage: 6.25MG (1/2 OF 12,5 MG SUPP.) RECTAL
     Route: 054
     Dates: start: 20070706, end: 20070706

REACTIONS (1)
  - HYPOTHERMIA [None]
